FAERS Safety Report 20102309 (Version 10)
Quarter: 2022Q4

REPORT INFORMATION
  Report Type: Report from Study
  Country: US (occurrence: US)
  Receive Date: 20211123
  Receipt Date: 20221213
  Transmission Date: 20230112
  Serious: Yes (Other)
  Sender: FDA-Public Use
  Company Number: US-BIOVITRUM-2021US4566

PATIENT
  Age: 27 Year
  Sex: Female

DRUGS (3)
  1. KINERET [Suspect]
     Active Substance: ANAKINRA
     Indication: Rheumatoid arthritis
     Dates: start: 20190417
  2. KINERET [Suspect]
     Active Substance: ANAKINRA
     Indication: Still^s disease
     Dates: start: 20190419
  3. PREDNISONE [Concomitant]
     Active Substance: PREDNISONE
     Indication: Product used for unknown indication

REACTIONS (30)
  - Rheumatoid arthritis [Unknown]
  - Mast cell activation syndrome [Unknown]
  - Joint swelling [Unknown]
  - Memory impairment [Unknown]
  - Pain [Unknown]
  - Renal pain [Unknown]
  - Hepatic pain [Unknown]
  - Laboratory test abnormal [Unknown]
  - Adverse drug reaction [Unknown]
  - Asthenia [Unknown]
  - Pain in extremity [Unknown]
  - Weight decreased [Unknown]
  - Osteopenia [Unknown]
  - Influenza like illness [Unknown]
  - Pyrexia [Unknown]
  - Drug intolerance [Unknown]
  - Back pain [Unknown]
  - Osteopenia [Unknown]
  - Musculoskeletal chest pain [Unknown]
  - COVID-19 [Unknown]
  - Feeling abnormal [Unknown]
  - Malaise [Unknown]
  - Loss of personal independence in daily activities [Unknown]
  - Injection site reaction [Unknown]
  - Injection site pain [Unknown]
  - Injection site hypoaesthesia [Unknown]
  - Product dose omission issue [Unknown]
  - Product use issue [Unknown]
  - Drug ineffective [Unknown]
  - Off label use [Not Recovered/Not Resolved]

NARRATIVE: CASE EVENT DATE: 20190419
